FAERS Safety Report 9819990 (Version 1)
Quarter: 2013Q3

REPORT INFORMATION
  Report Type: Spontaneous
  Country: US (occurrence: None)
  Receive Date: 20130924
  Receipt Date: 20130924
  Transmission Date: 20140515
  Serious: Yes (Other)
  Sender: FDA-Public Use
  Company Number: 2013000217

PATIENT
  Age: 51 Year
  Sex: Female
  Weight: 68.5 kg

DRUGS (4)
  1. OSPHENA [Suspect]
     Indication: DYSPAREUNIA
     Route: 048
     Dates: start: 20130603, end: 20130709
  2. MULTIVITAMIN (VITAMINS NOS) [Concomitant]
  3. CALCIUM WITH VITAMIN D (CALCIUM CARBONATE, COLECALCIFEROL) [Concomitant]
  4. BIOTIN (BIOTIN) [Concomitant]

REACTIONS (3)
  - Medication error [None]
  - Night sweats [None]
  - Hot flush [None]
